FAERS Safety Report 6300146-7 (Version None)
Quarter: 2009Q3

REPORT INFORMATION
  Report Type: 
  Country: None (occurrence: None)
  Receive Date: 20090806
  Receipt Date: 20090730
  Transmission Date: 20100115
  Serious: Yes (Hospitalization)
  Sender: FDA-Public Use
  Company Number: PHHO2009BE01057

PATIENT
  Sex: Female
  Weight: 52 kg

DRUGS (1)
  1. RAD 666 RAD+TAB [Suspect]
     Indication: METASTATIC RENAL CELL CARCINOMA
     Dosage: 10MG
     Route: 048
     Dates: start: 20081209, end: 20090110

REACTIONS (1)
  - GASTRITIS HAEMORRHAGIC [None]
